FAERS Safety Report 10146664 (Version 1)
Quarter: 2014Q2

REPORT INFORMATION
  Report Type: Spontaneous
  Country: GB (occurrence: None)
  Receive Date: 20140429
  Receipt Date: 20140429
  Transmission Date: 20141212
  Serious: Yes (Other)
  Sender: FDA-Public Use
  Company Number: 2014GB0193

PATIENT
  Age: 31 Year
  Sex: Male

DRUGS (1)
  1. KEPIVANCE [Suspect]
     Indication: STOMATITIS
     Route: 042
     Dates: start: 20130716, end: 20130813

REACTIONS (1)
  - Hypersensitivity [None]
